FAERS Safety Report 5409472-7 (Version None)
Quarter: 2007Q3

REPORT INFORMATION
  Report Type: 
  Country: None (occurrence: None)
  Receive Date: 20070807
  Receipt Date: 20070807
  Transmission Date: 20080115
  Serious: Yes (Life-Threatening, Other)
  Sender: FDA-Public Use
  Company Number: None

PATIENT
  Age: 59 Year
  Sex: Male
  Weight: 99.3377 kg

DRUGS (1)
  1. LIPITOR [Suspect]
     Dosage: 1 DAILY

REACTIONS (5)
  - DRUG HYPERSENSITIVITY [None]
  - ENDOTRACHEAL INTUBATION COMPLICATION [None]
  - LUNG DISORDER [None]
  - OBSTRUCTIVE AIRWAYS DISORDER [None]
  - SKIN DISCOLOURATION [None]
